FAERS Safety Report 15814239 (Version 1)
Quarter: 2019Q1

REPORT INFORMATION
  Report Type: Spontaneous
  Country: US (occurrence: US)
  Receive Date: 20190111
  Receipt Date: 20190111
  Transmission Date: 20190417
  Serious: No
  Sender: FDA-Public Use
  Company Number: US-JAZZ-2018-US-015249

PATIENT
  Age: 55 Year
  Sex: Male
  Weight: 92.97 kg

DRUGS (2)
  1. PRIALT [Suspect]
     Active Substance: ZICONOTIDE ACETATE
     Indication: PRODUCT USED FOR UNKNOWN INDICATION
     Dosage: 0.608 ?G, QH
     Route: 037
     Dates: end: 2018
  2. BUPIVACAINE. [Suspect]
     Active Substance: BUPIVACAINE
     Indication: PRODUCT USED FOR UNKNOWN INDICATION
     Dosage: 0.48 MG, QH
     Route: 037
     Dates: end: 2018

REACTIONS (2)
  - Catheter site granuloma [Unknown]
  - Device issue [Unknown]

NARRATIVE: CASE EVENT DATE: 20181009
